FAERS Safety Report 7792437-8 (Version None)
Quarter: 2011Q3

REPORT INFORMATION
  Report Type: 
  Country: None (occurrence: None)
  Receive Date: 20110929
  Receipt Date: 20110919
  Transmission Date: 20111222
  Serious: Yes (Other)
  Sender: FDA-Public Use
  Company Number: 2011MA014117

PATIENT
  Age: 39 Year
  Sex: Female

DRUGS (2)
  1. PENICILLIN [Concomitant]
  2. CITALOPRAM HYDROBROMIDE [Suspect]
     Indication: ANXIETY
     Dosage: 10 MG, X1, PO
     Route: 048
     Dates: start: 20110720, end: 20110720

REACTIONS (14)
  - OEDEMA [None]
  - POLYMERASE CHAIN REACTION [None]
  - NEPHRITIS [None]
  - PAIN IN JAW [None]
  - FACE OEDEMA [None]
  - NAUSEA [None]
  - HYPERTENSION [None]
  - VOMITING [None]
  - SWELLING [None]
  - DIARRHOEA [None]
  - GLOMERULAR FILTRATION RATE DECREASED [None]
  - PAIN [None]
  - FLUID RETENTION [None]
  - NO THERAPEUTIC RESPONSE [None]
